FAERS Safety Report 10079088 (Version 1)
Quarter: 2014Q2

REPORT INFORMATION
  Report Type: Spontaneous
  Country: US (occurrence: None)
  Receive Date: 20140411
  Receipt Date: 20140411
  Transmission Date: 20141212
  Serious: Yes (Other)
  Sender: FDA-Public Use
  Company Number: None

PATIENT
  Age: 64 Year
  Sex: Female
  Weight: 102.06 kg

DRUGS (8)
  1. MIRVASO [Suspect]
     Indication: ROSACEA
     Dosage: 5 PEA SIZE DOTS ONCE DAILY AM TOPICAL= 5 SPOTS ON FACE BOTH CHEEKS, CHIN, NOSE, AND FOREHEAD
     Route: 061
     Dates: start: 20140312, end: 20140314
  2. OMEPRAZOLE [Concomitant]
  3. PRVASTATIN [Concomitant]
  4. ASPIRIN [Concomitant]
  5. MULTIVIAMIN [Concomitant]
  6. FISH OIL [Concomitant]
  7. VITAMIN D-3 [Concomitant]
  8. METRONDIZOLE [Concomitant]

REACTIONS (4)
  - Inflammation [None]
  - Rosacea [None]
  - Condition aggravated [None]
  - Acne [None]
